FAERS Safety Report 18497942 (Version 1)
Quarter: 2020Q4

REPORT INFORMATION
  Report Type: Spontaneous
  Country: GB (occurrence: GB)
  Receive Date: 20201112
  Receipt Date: 20201112
  Transmission Date: 20210114
  Serious: Yes (Other)
  Sender: FDA-Public Use
  Company Number: GB-TEVA-2020-GB-1847400

PATIENT
  Age: 63 Year
  Sex: Female
  Weight: 122 kg

DRUGS (15)
  1. NITROFURANTOIN. [Suspect]
     Active Substance: NITROFURANTOIN
     Dates: start: 20201009
  2. SALBUTAMOL [Concomitant]
     Active Substance: ALBUTEROL
     Dosage: 8 DOSAGE FORMS DAILY; PUFFS. FOUR TIMES A DAY
     Dates: start: 20200127
  3. CO-AMOXICLAV [Concomitant]
     Active Substance: AMOXICILLIN\CLAVULANATE POTASSIUM
     Dates: start: 20200728, end: 20200804
  4. TRIMETHOPRIM. [Concomitant]
     Active Substance: TRIMETHOPRIM
     Dates: start: 20201014
  5. GAVISCON [Concomitant]
     Active Substance: ALUMINUM HYDROXIDE\MAGNESIUM CARBONATE
     Dosage: 5-10ML UPTO 4 TIMES DAILY (QDS)
     Dates: start: 20200127
  6. LEVOTHYROXINE. [Concomitant]
     Active Substance: LEVOTHYROXINE
     Dates: start: 20200127
  7. CYCLIZINE [Concomitant]
     Active Substance: CYCLIZINE
     Dates: start: 20200817, end: 20200907
  8. AMOXICILLIN. [Concomitant]
     Active Substance: AMOXICILLIN
     Dates: start: 20200825, end: 20200825
  9. OMEPRAZOLE. [Concomitant]
     Active Substance: OMEPRAZOLE
     Dosage: TAKE FOUR HOURS APART FROM THYROXINE
     Dates: start: 20200825, end: 20200901
  10. COCODAMOL [Concomitant]
     Active Substance: ACETAMINOPHEN\CODEINE PHOSPHATE
     Dosage: TAKE 1 OR 2 UP TO 4 TIMES/DAY
     Dates: start: 20200723, end: 20200804
  11. METRONIDAZOLE. [Concomitant]
     Active Substance: METRONIDAZOLE
     Dosage: DO NOT DRINK ALCOHOL WHIL...
     Dates: start: 20200825, end: 20200901
  12. SOPROBEC [Concomitant]
     Dosage: P
     Dates: start: 20200330
  13. NAPROXEN. [Concomitant]
     Active Substance: NAPROXEN
     Dates: start: 20200730, end: 20200802
  14. CLARITHROMYCIN. [Concomitant]
     Active Substance: CLARITHROMYCIN
     Dates: start: 20200825, end: 20200901
  15. AMLODIPINE [Concomitant]
     Active Substance: AMLODIPINE BESYLATE
     Dates: start: 20200127

REACTIONS (2)
  - Pruritus genital [Recovering/Resolving]
  - Candida infection [Recovering/Resolving]

NARRATIVE: CASE EVENT DATE: 20201014
